FAERS Safety Report 14234256 (Version 1)
Quarter: 2017Q4

REPORT INFORMATION
  Report Type: Spontaneous
  Country: HR (occurrence: HR)
  Receive Date: 20171129
  Receipt Date: 20171129
  Transmission Date: 20180321
  Serious: Yes (Other)
  Sender: FDA-Public Use
  Company Number: HR-ROCHE-2026662

PATIENT
  Age: 69 Year
  Sex: Male

DRUGS (6)
  1. PRADAXA [Concomitant]
     Active Substance: DABIGATRAN ETEXILATE MESYLATE
     Indication: PULMONARY EMBOLISM
     Route: 048
     Dates: start: 20170505
  2. COTELLIC [Suspect]
     Active Substance: COBIMETINIB
     Indication: MALIGNANT MELANOMA
     Dosage: 21 DAYS THEN PAUSE
     Route: 048
     Dates: start: 20170620
  3. CONTROLOC [Concomitant]
     Active Substance: PANTOPRAZOLE SODIUM
     Indication: GASTRIC ULCER
     Route: 048
     Dates: start: 201703
  4. MEDROL [Concomitant]
     Active Substance: METHYLPREDNISOLONE
     Indication: BRAIN OEDEMA
     Route: 048
     Dates: start: 201706
  5. ZELBORAF [Concomitant]
     Active Substance: VEMURAFENIB
     Route: 065
  6. KEPPRA [Concomitant]
     Active Substance: LEVETIRACETAM
     Indication: EPILEPSY
     Route: 048
     Dates: start: 201703

REACTIONS (2)
  - Haematuria [Recovered/Resolved]
  - Haematochezia [Recovered/Resolved]

NARRATIVE: CASE EVENT DATE: 20170705
